FAERS Safety Report 6589587-0 (Version None)
Quarter: 2010Q1

REPORT INFORMATION
  Report Type: 
  Country: None (occurrence: None)
  Receive Date: 20100212
  Receipt Date: 20100126
  Transmission Date: 20100710
  Serious: Yes (Other)
  Sender: FDA-Public Use
  Company Number: TRP_06761_2010

PATIENT
  Sex: Female

DRUGS (6)
  1. RIBAPAK (NOT SPECIFIED) [Suspect]
     Indication: HEPATITIS C
     Dosage: 600 MG, ORAL
     Route: 048
  2. PEG-INTRON [Suspect]
     Indication: HEPATITIS C
     Dosage: DF
  3. KLONOPIN [Concomitant]
  4. ZOLOFT [Concomitant]
  5. TRAZODONE HCL [Concomitant]
  6. ANALGESICS [Concomitant]

REACTIONS (9)
  - ANAEMIA [None]
  - BACK PAIN [None]
  - CANDIDIASIS [None]
  - DENTAL CARIES [None]
  - DEPRESSION [None]
  - DRY MOUTH [None]
  - MEMORY IMPAIRMENT [None]
  - TOOTH FRACTURE [None]
  - TOOTH HYPOPLASIA [None]
